FAERS Safety Report 7451158-1 (Version None)
Quarter: 2011Q2

REPORT INFORMATION
  Report Type: 
  Country: None (occurrence: None)
  Receive Date: 20110502
  Receipt Date: 20110419
  Transmission Date: 20111010
  Serious: Yes (Other)
  Sender: FDA-Public Use
  Company Number: PHHY2011AT35017

PATIENT
  Age: 86 Year
  Sex: Male

DRUGS (1)
  1. TASIGNA [Suspect]
     Indication: CHRONIC MYELOID LEUKAEMIA
     Dosage: 400 MG, BID
     Route: 048

REACTIONS (2)
  - BLOOD GLUCOSE INCREASED [None]
  - PERIPHERAL ARTERIAL OCCLUSIVE DISEASE [None]
